FAERS Safety Report 7301098-3 (Version None)
Quarter: 2011Q1

REPORT INFORMATION
  Report Type: 
  Country: None (occurrence: None)
  Receive Date: 20110218
  Receipt Date: 20110211
  Transmission Date: 20110831
  Serious: Yes (Hospitalization)
  Sender: FDA-Public Use
  Company Number: IT-BRISTOL-MYERS SQUIBB COMPANY-15548399

PATIENT
  Age: 76 Year
  Sex: Male

DRUGS (6)
  1. COUMADIN [Suspect]
     Indication: CORONARY ARTERY BYPASS
     Dosage: 1DF= 1UNIT , . COUMADIN WAS SUSPENDED AND REINTRODUCED
     Dates: start: 19900101
  2. BARNIDIPINE [Suspect]
     Indication: HYPERTENSION
     Dosage: 1DF: 1UNIT
     Route: 048
     Dates: start: 20101201, end: 20110121
  3. COMBISARTAN [Concomitant]
     Dosage: 1DF= 1UNIT
     Route: 048
  4. CIALIS [Concomitant]
     Dosage: CIALIS TAB
  5. TAVOR [Concomitant]
     Route: 048
  6. METOPROLOL [Suspect]
     Indication: HYPERTENSION
     Dates: start: 20090121

REACTIONS (3)
  - EPISTAXIS [None]
  - BRADYCARDIA [None]
  - DRUG INTERACTION [None]
